FAERS Safety Report 16274588 (Version 2)
Quarter: 2019Q3

REPORT INFORMATION
  Report Type: Spontaneous
  Country: NL (occurrence: NL)
  Receive Date: 20190504
  Receipt Date: 20190814
  Transmission Date: 20191004
  Serious: Yes (Hospitalization, Other)
  Sender: FDA-Public Use
  Company Number: PHHY2019NL096851

PATIENT
  Age: 41 Year
  Sex: Male

DRUGS (9)
  1. PARACETAMOL [Suspect]
     Active Substance: ACETAMINOPHEN
     Indication: PAIN
     Dosage: 1000 MG, QD
     Route: 065
  2. CANNABIDIOL [Interacting]
     Active Substance: CANNABIDIOL
     Indication: PAIN
     Dosage: 20 MG/ML, UNK
     Route: 065
  3. CANNABIDIOL [Interacting]
     Active Substance: CANNABIDIOL
     Dosage: 3 MG, QID
     Route: 065
  4. OXYCODONE HYDROCHLORIDE. [Interacting]
     Active Substance: OXYCODONE HYDROCHLORIDE
     Indication: PAIN
     Dosage: 20 MG, QD
     Route: 065
  5. TETRAHYDROCANNABINOL [Interacting]
     Active Substance: DRONABINOL
     Indication: PAIN
     Dosage: 13 MG/ML, UNK
     Route: 065
  6. IBUPROFEN. [Suspect]
     Active Substance: IBUPROFEN
     Indication: PAIN
     Dosage: 200 MG, Q6H
     Route: 065
  7. MORPHINE [Suspect]
     Active Substance: MORPHINE
     Indication: PAIN
     Dosage: 5 MG/G, QD
     Route: 061
  8. OXYCODONE HYDROCHLORIDE. [Interacting]
     Active Substance: OXYCODONE HYDROCHLORIDE
     Dosage: 5 MG, TID
     Route: 065
  9. TETRAHYDROCANNABINOL [Interacting]
     Active Substance: DRONABINOL
     Dosage: 1.95 MG, QID
     Route: 065

REACTIONS (5)
  - Neurological symptom [Recovering/Resolving]
  - Drug interaction [Recovering/Resolving]
  - Wound complication [Unknown]
  - Pain [Recovering/Resolving]
  - Time perception altered [Recovering/Resolving]
